FAERS Safety Report 8524727-5 (Version None)
Quarter: 2012Q3

REPORT INFORMATION
  Report Type: 
  Country: None (occurrence: None)
  Receive Date: 20120720
  Receipt Date: 20120718
  Transmission Date: 20120928
  Serious: Yes (Death, Other)
  Sender: FDA-Public Use
  Company Number: US-ELI_LILLY_AND_COMPANY-US201207005616

PATIENT
  Sex: Female

DRUGS (1)
  1. ALIMTA [Suspect]
     Dosage: UNK, UNKNOWN
     Route: 065
     Dates: start: 20110715

REACTIONS (2)
  - DEATH [None]
  - NEOPLASM PROGRESSION [None]
